FAERS Safety Report 20595448 (Version 1)
Quarter: 2022Q1

REPORT INFORMATION
  Report Type: Spontaneous
  Country: FR (occurrence: FR)
  Receive Date: 20220315
  Receipt Date: 20220315
  Transmission Date: 20220423
  Serious: Yes (Hospitalization)
  Sender: FDA-Public Use
  Company Number: None

PATIENT
  Age: 1 Day
  Sex: Female
  Weight: 2.2 kg

DRUGS (4)
  1. ARIPIPRAZOLE [Suspect]
     Active Substance: ARIPIPRAZOLE
     Route: 064
     Dates: start: 202106
  2. CYAMEMAZINE [Suspect]
     Active Substance: CYAMEMAZINE
     Route: 064
     Dates: start: 202106
  3. VENLAFAXINE [Suspect]
     Active Substance: VENLAFAXINE HYDROCHLORIDE
     Route: 064
     Dates: start: 202106
  4. OXAZEPAM [Suspect]
     Active Substance: OXAZEPAM
     Dosage: STRENGTH 50 MG, SCORED TABLET
     Route: 064
     Dates: start: 202106

REACTIONS (2)
  - Withdrawal syndrome [Recovered/Resolved]
  - Hypoventilation neonatal [Recovered/Resolved]

NARRATIVE: CASE EVENT DATE: 20220125
